FAERS Safety Report 5633269-6 (Version None)
Quarter: 2008Q1

REPORT INFORMATION
  Report Type: 
  Country: None (occurrence: None)
  Receive Date: 20080221
  Receipt Date: 20080213
  Transmission Date: 20080703
  Serious: Yes (Other)
  Sender: FDA-Public Use
  Company Number: ES-MERCK-0802ESP00020

PATIENT
  Age: 58 Year
  Sex: Male

DRUGS (2)
  1. ZOCOR [Suspect]
     Route: 048
     Dates: start: 20070121, end: 20070210
  2. VASOTEC [Suspect]
     Indication: HYPERTENSION
     Route: 048
     Dates: start: 20070121, end: 20070210

REACTIONS (2)
  - ANGIOEDEMA [None]
  - DYSPNOEA [None]
